FAERS Safety Report 8508269-9 (Version None)
Quarter: 2012Q3

REPORT INFORMATION
  Report Type: 
  Country: None (occurrence: None)
  Receive Date: 20120713
  Receipt Date: 20120702
  Transmission Date: 20120928
  Serious: Yes (Other)
  Sender: FDA-Public Use
  Company Number: JP-AMGEN-JPNCT2012043050

PATIENT
  Age: 89 Year
  Sex: Male
  Weight: 54 kg

DRUGS (19)
  1. DARBEPOETIN ALFA - KHK [Suspect]
     Dosage: 60 MUG, Q4WK
     Route: 058
     Dates: start: 20110920, end: 20111115
  2. IRBESARTAN [Concomitant]
     Dosage: UNCERTAINTY
     Route: 048
  3. OMEPRAZOLE [Concomitant]
     Dosage: UNCERTAINTY
     Route: 048
  4. BIO-THREE [Concomitant]
     Dosage: UNCERTAINTY
     Route: 048
  5. GASTROM [Concomitant]
     Dosage: UNCERTAINTY
     Route: 048
  6. HOKUNALIN [Concomitant]
     Dosage: UNCERTAINTY
     Route: 061
  7. NATEGLINIDE [Concomitant]
     Dosage: UNCERTAINTY
     Route: 048
  8. ENTERONON-R [Concomitant]
     Dosage: UNCERTAINTY
     Route: 048
  9. GRAMALIL [Concomitant]
     Dosage: UNCERTAINTY
     Route: 048
  10. FERROUS CITRATE [Concomitant]
     Dosage: UNCERTAINTY
     Route: 048
  11. DARBEPOETIN ALFA - KHK [Suspect]
     Dosage: 60 MUG, QD
     Route: 040
     Dates: start: 20120110, end: 20120110
  12. ADALAT CC [Concomitant]
     Dosage: UNCERTAINTY
     Route: 048
  13. TORSEMIDE [Concomitant]
     Dosage: UNCERTAINTY
     Route: 048
  14. BISACODYL [Concomitant]
     Dosage: UNCERTAINTY
     Route: 054
  15. FRANDOL S [Concomitant]
     Dosage: UNCERTAINTY
     Route: 061
  16. DUTASTERIDE [Concomitant]
     Dosage: UNCERTAINTY
     Route: 048
  17. URIEF [Concomitant]
     Dosage: UNCERTAINTY
     Route: 048
  18. DARBEPOETIN ALFA - KHK [Suspect]
     Indication: NEPHROGENIC ANAEMIA
     Dosage: 30 MUG, Q2WK
     Route: 058
     Dates: start: 20110826, end: 20110906
  19. DARBEPOETIN ALFA - KHK [Suspect]
     Dosage: 120 MUG, QD
     Route: 040
     Dates: start: 20120207, end: 20120207

REACTIONS (3)
  - OCCULT BLOOD POSITIVE [None]
  - ANAEMIA [None]
  - WEIGHT DECREASED [None]
